FAERS Safety Report 13234774 (Version 2)
Quarter: 2018Q1

REPORT INFORMATION
  Report Type: Report from Study
  Country: None (occurrence: US)
  Receive Date: 20170215
  Receipt Date: 20180212
  Transmission Date: 20180508
  Serious: No
  Sender: FDA-Public Use
  Company Number: US-AMAG PHARMACEUTICALS, INC.-AMAG201602645

PATIENT

DRUGS (2)
  1. MAKENA [Suspect]
     Active Substance: HYDROXYPROGESTERONE CAPROATE
     Indication: PREMATURE LABOUR
     Dosage: 250 MG/ML, WEEKLY
     Route: 030
     Dates: start: 20161109
  2. PRENATAL VITAMINS [Concomitant]
     Active Substance: VITAMINS
     Indication: PREGNANCY
     Dosage: 1 TABS, UNK

REACTIONS (1)
  - Myalgia [Recovered/Resolved]

NARRATIVE: CASE EVENT DATE: 20161109
